FAERS Safety Report 23280353 (Version 1)
Quarter: 2023Q4

REPORT INFORMATION
  Report Type: Spontaneous
  Country: None (occurrence: US)
  Receive Date: 20231210
  Receipt Date: 20231210
  Transmission Date: 20240110
  Serious: No
  Sender: FDA-Public Use
  Company Number: US-OrBion Pharmaceuticals Private Limited-2149185

PATIENT
  Sex: Male

DRUGS (1)
  1. ROPINIROLE HYDROCHLORIDE [Suspect]
     Active Substance: ROPINIROLE HYDROCHLORIDE
     Route: 048

REACTIONS (3)
  - Dysgeusia [Unknown]
  - Parosmia [Unknown]
  - Malaise [Unknown]
